FAERS Safety Report 22097993 (Version 4)
Quarter: 2023Q2

REPORT INFORMATION
  Report Type: Spontaneous
  Country: GB (occurrence: GB)
  Receive Date: 20230315
  Receipt Date: 20230414
  Transmission Date: 20230722
  Serious: Yes (Other)
  Sender: FDA-Public Use
  Company Number: GB-002147023-NVSC2023GB056318

PATIENT
  Age: 66 Year
  Sex: Female
  Weight: 64 kg

DRUGS (8)
  1. LUTATHERA [Suspect]
     Active Substance: LUTETIUM OXODOTREOTIDE LU-177
     Indication: Small intestine neuroendocrine tumour
     Dosage: UNK (1ST CYCLE)
     Route: 065
     Dates: start: 20160622
  2. LUTATHERA [Suspect]
     Active Substance: LUTETIUM OXODOTREOTIDE LU-177
     Dosage: UNK (2ND CYCLE)
     Route: 065
     Dates: start: 20160906
  3. LUTATHERA [Suspect]
     Active Substance: LUTETIUM OXODOTREOTIDE LU-177
     Dosage: UNK (3RD CYCLE)
     Route: 065
     Dates: start: 20161129
  4. LUTATHERA [Suspect]
     Active Substance: LUTETIUM OXODOTREOTIDE LU-177
     Dosage: UNK (4TH CYCLE)
     Route: 065
     Dates: start: 20170207
  5. LUTATHERA [Suspect]
     Active Substance: LUTETIUM OXODOTREOTIDE LU-177
     Dosage: 7.4 GBQ (5TH CYCLE)
     Route: 042
     Dates: start: 20200806, end: 20200806
  6. LUTATHERA [Suspect]
     Active Substance: LUTETIUM OXODOTREOTIDE LU-177
     Dosage: UNK (6TH CYCLE)
     Route: 065
     Dates: start: 20201013
  7. ARGININ [Concomitant]
     Indication: Renal disorder prophylaxis
     Dosage: 250 ML, QH (FOR 4 H)
     Route: 042
     Dates: start: 20200806, end: 20200806
  8. LYSINE HCL [Concomitant]
     Indication: Renal disorder prophylaxis
     Dosage: 250 ML, QH (250 MLS/H FOR 4 H)
     Route: 042
     Dates: start: 20200806, end: 20200806

REACTIONS (3)
  - Small intestine neuroendocrine tumour [Not Recovered/Not Resolved]
  - Malignant neoplasm progression [Not Recovered/Not Resolved]
  - Off label use [Unknown]

NARRATIVE: CASE EVENT DATE: 20221011
